FAERS Safety Report 20102624 (Version 1)
Quarter: 2021Q4

REPORT INFORMATION
  Report Type: Spontaneous
  Country: CN (occurrence: CN)
  Receive Date: 20211123
  Receipt Date: 20211123
  Transmission Date: 20220303
  Serious: Yes (Disabling, Other)
  Sender: FDA-Public Use
  Company Number: CN-BAXTER-2021BAX036407

PATIENT
  Age: 64 Year
  Sex: Male
  Weight: 65 kg

DRUGS (9)
  1. MANNITOL [Suspect]
     Active Substance: MANNITOL
     Indication: Cerebral haemorrhage
     Route: 041
     Dates: start: 20211009, end: 20211015
  2. HYDROCHLOROTHIAZIDE\IRBESARTAN [Suspect]
     Active Substance: HYDROCHLOROTHIAZIDE\IRBESARTAN
     Indication: Hypertension
     Dosage: TABLET FORM?DOSE: 1.0 TABLET
     Route: 048
     Dates: start: 20211010, end: 20211015
  3. GLICLAZIDE [Suspect]
     Active Substance: GLICLAZIDE
     Indication: Drug therapy
     Dosage: TABLET FORM?SUSTAINED-RELEASE TABLETS
     Route: 048
     Dates: start: 20211010, end: 20211016
  4. GLICLAZIDE [Suspect]
     Active Substance: GLICLAZIDE
     Indication: Type 2 diabetes mellitus
  5. METFORMIN HYDROCHLORIDE [Suspect]
     Active Substance: METFORMIN HYDROCHLORIDE
     Indication: Drug therapy
     Dosage: TABLET FORM
     Route: 048
     Dates: start: 20211010, end: 20211016
  6. METFORMIN HYDROCHLORIDE [Suspect]
     Active Substance: METFORMIN HYDROCHLORIDE
     Indication: Type 2 diabetes mellitus
  7. NIFEDIPINE [Suspect]
     Active Substance: NIFEDIPINE
     Indication: Hypertension
     Dosage: CONTROLLED RELEASE TABLETS
     Route: 048
     Dates: start: 20211010, end: 20211023
  8. ESOMEPRAZOLE SODIUM [Suspect]
     Active Substance: ESOMEPRAZOLE SODIUM
     Indication: Prophylaxis
     Route: 041
     Dates: start: 20211009, end: 20211029
  9. ESOMEPRAZOLE SODIUM [Suspect]
     Active Substance: ESOMEPRAZOLE SODIUM
     Indication: Cerebral haemorrhage

REACTIONS (9)
  - Somnolence [Recovering/Resolving]
  - Facial paralysis [Unknown]
  - Tongue paralysis [Unknown]
  - Renal impairment [Recovering/Resolving]
  - Decreased appetite [Unknown]
  - Poor quality sleep [Unknown]
  - Sensory disturbance [Unknown]
  - Muscle strength abnormal [Unknown]
  - Confusional state [Unknown]

NARRATIVE: CASE EVENT DATE: 20211015
